FAERS Safety Report 21934323 (Version 1)
Quarter: 2023Q1

REPORT INFORMATION
  Report Type: Report from Study
  Country: US (occurrence: US)
  Receive Date: 20230201
  Receipt Date: 20230201
  Transmission Date: 20230418
  Serious: Yes (Other)
  Sender: FDA-Public Use
  Company Number: US-ABBVIE-4290453

PATIENT
  Sex: Female

DRUGS (3)
  1. IMBRUVICA [Suspect]
     Active Substance: IBRUTINIB
     Indication: Lymphocytic leukaemia
     Dosage: LAST ADMIN DATE: 2019
     Route: 048
     Dates: start: 20190430
  2. IMBRUVICA [Suspect]
     Active Substance: IBRUTINIB
     Indication: Lymphocytic leukaemia
     Dosage: 280 MILLIGRAM DAILY
     Route: 048
  3. IMBRUVICA [Suspect]
     Active Substance: IBRUTINIB
     Indication: Lymphocytic leukaemia
     Dosage: 420MG DAILY
     Route: 048
     Dates: start: 201905, end: 20190927

REACTIONS (3)
  - Adverse food reaction [Unknown]
  - Medical device implantation [Unknown]
  - Oral discomfort [Unknown]
